FAERS Safety Report 15715624 (Version 1)
Quarter: 2018Q4

REPORT INFORMATION
  Report Type: Report from Study
  Country: US (occurrence: US)
  Receive Date: 20181212
  Receipt Date: 20181212
  Transmission Date: 20190205
  Serious: Yes (Other)
  Sender: FDA-Public Use
  Company Number: US-ELI_LILLY_AND_COMPANY-US201812003429

PATIENT
  Age: 55 Year
  Sex: Female

DRUGS (1)
  1. IXEKIZUMAB [Suspect]
     Active Substance: IXEKIZUMAB
     Indication: PSORIASIS
     Dosage: 80 MG, UNKNOWN
     Route: 058
     Dates: start: 20171027

REACTIONS (5)
  - Cellulitis [Not Recovered/Not Resolved]
  - Injection site erythema [Recovered/Resolved]
  - Eye infection [Not Recovered/Not Resolved]
  - Ear infection [Not Recovered/Not Resolved]
  - Dandruff [Unknown]

NARRATIVE: CASE EVENT DATE: 20181119
